FAERS Safety Report 15401019 (Version 1)
Quarter: 2018Q3

REPORT INFORMATION
  Report Type: Spontaneous
  Country: NG (occurrence: NG)
  Receive Date: 20180919
  Receipt Date: 20180919
  Transmission Date: 20181010
  Serious: Yes (Death, Hospitalization, Other)
  Sender: FDA-Public Use
  Company Number: NG-JNJFOC-20180915309

PATIENT
  Age: 75 Year
  Sex: Female

DRUGS (2)
  1. ENOXAPARIN [Interacting]
     Active Substance: ENOXAPARIN
     Indication: PRODUCT USED FOR UNKNOWN INDICATION
     Route: 065
  2. XARELTO [Suspect]
     Active Substance: RIVAROXABAN
     Indication: CEREBROVASCULAR ACCIDENT PROPHYLAXIS
     Route: 048

REACTIONS (4)
  - Haematuria [Unknown]
  - Labelled drug-drug interaction medication error [Unknown]
  - Bladder mass [Unknown]
  - Death [Fatal]
